FAERS Safety Report 6256676-X (Version None)
Quarter: 2009Q2

REPORT INFORMATION
  Report Type: 
  Country: None (occurrence: None)
  Receive Date: 20090630
  Receipt Date: 20090630
  Transmission Date: 20091009
  Serious: Yes (Hospitalization)
  Sender: FDA-Public Use
  Company Number: None

PATIENT
  Age: 79 Year
  Sex: Female
  Weight: 61.2356 kg

DRUGS (1)
  1. AUGMENTIN [Suspect]
     Indication: SINUSITIS
     Dosage: 1 3 X A DAY PO
     Route: 048
     Dates: start: 20090623, end: 20090625

REACTIONS (2)
  - LIP SWELLING [None]
  - URTICARIA [None]
